FAERS Safety Report 5823694-2 (Version None)
Quarter: 2008Q3

REPORT INFORMATION
  Report Type: 
  Country: None (occurrence: None)
  Receive Date: 20080725
  Receipt Date: 20080714
  Transmission Date: 20090109
  Serious: Yes (Hospitalization, Other)
  Sender: FDA-Public Use
  Company Number: US-PFIZER INC-2008050106

PATIENT
  Sex: Male

DRUGS (12)
  1. DILANTIN SUSPENSION [Suspect]
     Indication: GRAND MAL CONVULSION
  2. DILANTIN SUSPENSION [Suspect]
     Indication: PETIT MAL EPILEPSY
  3. DILANTIN SUSPENSION [Suspect]
     Indication: CONVULSION
  4. CHANTIX [Suspect]
     Indication: SMOKING CESSATION THERAPY
     Dosage: FREQ:EVERY DAY
     Dates: start: 20060101, end: 20080501
  5. LIPITOR [Concomitant]
  6. TEGRETOL [Concomitant]
  7. PHENOBARBITAL TAB [Concomitant]
  8. VALIUM [Concomitant]
  9. TYLENOL W/ CODEINE NO. 4 [Concomitant]
  10. ATENOLOL [Concomitant]
  11. DIURETICS [Concomitant]
  12. ALL OTHER THERAPEUTIC PRODUCTS [Concomitant]

REACTIONS (9)
  - ANKLE FRACTURE [None]
  - CEREBROVASCULAR ACCIDENT [None]
  - CONVERSION DISORDER [None]
  - CONVULSION [None]
  - DEPRESSED LEVEL OF CONSCIOUSNESS [None]
  - FALL [None]
  - GRAND MAL CONVULSION [None]
  - TOOTH FRACTURE [None]
  - UNEVALUABLE EVENT [None]
